FAERS Safety Report 10264312 (Version 2)
Quarter: 2015Q1

REPORT INFORMATION
  Report Type: Report from Study
  Country: US (occurrence: US)
  Receive Date: 20140627
  Receipt Date: 20150205
  Transmission Date: 20150720
  Serious: No
  Sender: FDA-Public Use
  Company Number: US-AMGEN-USASP2014048069

PATIENT
  Age: 84 Year
  Sex: Female

DRUGS (5)
  1. NEUPRO [Concomitant]
     Active Substance: ROTIGOTINE
     Dosage: 6 MG, QD
  2. ENBREL [Suspect]
     Active Substance: ETANERCEPT
     Indication: RHEUMATOID ARTHRITIS
     Dosage: 50 MG, QWK
     Route: 065
     Dates: start: 20120101
  3. MIRTAZAPINE. [Concomitant]
     Active Substance: MIRTAZAPINE
     Dosage: 7.5 MG, BID
  4. METHOTREXATE [Concomitant]
     Active Substance: METHOTREXATE
     Dosage: 10.0 MG, QWK
  5. ROPINIROLE. [Concomitant]
     Active Substance: ROPINIROLE
     Dosage: 0.50 MG, TID

REACTIONS (3)
  - Memory impairment [Not Recovered/Not Resolved]
  - Hallucination [Recovered/Resolved]
  - Dysphonia [Not Recovered/Not Resolved]

NARRATIVE: CASE EVENT DATE: 2012
